FAERS Safety Report 9776277 (Version 1)
Quarter: 2013Q4

REPORT INFORMATION
  Report Type: Spontaneous
  Country: TW (occurrence: TW)
  Receive Date: 20131220
  Receipt Date: 20131220
  Transmission Date: 20140711
  Serious: Yes (Hospitalization)
  Sender: FDA-Public Use
  Company Number: TW-MYLANLABS-2013S1027735

PATIENT
  Age: 64 Year
  Sex: Female

DRUGS (1)
  1. DICLOFENAC [Suspect]
     Indication: BACK PAIN
     Route: 065

REACTIONS (7)
  - Colitis [Recovered/Resolved]
  - Septic shock [Recovered/Resolved]
  - Renal failure acute [Recovered/Resolved]
  - Acute respiratory failure [Recovered/Resolved]
  - Renal abscess [Recovered/Resolved]
  - Splenic abscess [Recovered/Resolved]
  - Klebsiella bacteraemia [Recovered/Resolved]
